FAERS Safety Report 6960341-0 (Version None)
Quarter: 2010Q3

REPORT INFORMATION
  Report Type: 
  Country: None (occurrence: None)
  Receive Date: 20100823
  Receipt Date: 20100616
  Transmission Date: 20110219
  Serious: Yes (Other)
  Sender: FDA-Public Use
  Company Number: WAES 1006USA02729

PATIENT
  Sex: Male

DRUGS (1)
  1. INJ IVEMEND UNK [Suspect]
     Indication: PROPHYLAXIS OF NAUSEA AND VOMITING
     Dosage: 115 MG/IV
     Route: 042

REACTIONS (1)
  - ANAPHYLACTIC REACTION [None]
